FAERS Safety Report 10722005 (Version 2)
Quarter: 2015Q1

REPORT INFORMATION
  Report Type: Spontaneous
  Country: DE (occurrence: DE)
  Receive Date: 20150120
  Receipt Date: 20150123
  Transmission Date: 20150721
  Serious: Yes (Life-Threatening, Other)
  Sender: FDA-Public Use
  Company Number: DE-ROCHE-1521197

PATIENT
  Age: 55 Year
  Sex: Male

DRUGS (2)
  1. ACTILYSE [Suspect]
     Active Substance: ALTEPLASE
     Indication: PULMONARY EMBOLISM
  2. ACTILYSE [Suspect]
     Active Substance: ALTEPLASE
     Indication: DEEP VEIN THROMBOSIS
     Route: 065

REACTIONS (4)
  - Cardiac disorder [Recovered/Resolved]
  - Cardiogenic shock [Recovered/Resolved]
  - General physical health deterioration [Recovered/Resolved]
  - Drug ineffective [Unknown]
